FAERS Safety Report 4904934-0 (Version None)
Quarter: 2006Q1

REPORT INFORMATION
  Report Type: 
  Country: None (occurrence: None)
  Receive Date: 20060208
  Receipt Date: 20051024
  Transmission Date: 20060701
  Serious: No
  Sender: FDA-Public Use
  Company Number: US-GLAXOSMITHKLINE-A0579393A

PATIENT
  Age: 8 Year
  Sex: Female

DRUGS (4)
  1. PAROXETINE HCL [Suspect]
     Dosage: 60MG PER DAY
     Route: 048
     Dates: start: 20030101, end: 20030101
  2. PAXIL [Suspect]
     Dosage: 60MG PER DAY
     Route: 048
  3. CONCERTA [Concomitant]
  4. CLONIDINE [Concomitant]

REACTIONS (3)
  - AFFECT LABILITY [None]
  - DRUG INEFFECTIVE [None]
  - EMOTIONAL DISORDER [None]
